FAERS Safety Report 7907533-1 (Version None)
Quarter: 2011Q4

REPORT INFORMATION
  Report Type: 
  Country: None (occurrence: None)
  Receive Date: 20111109
  Receipt Date: 20111109
  Transmission Date: 20120403
  Serious: Yes (Hospitalization)
  Sender: FDA-Public Use
  Company Number: None

PATIENT
  Sex: Female
  Weight: 82.7 kg

DRUGS (1)
  1. ALFA 2 INFERFERON 2B (INTRON-A) [Suspect]
     Dosage: 400 MILLION IU

REACTIONS (3)
  - HYPONATRAEMIA [None]
  - MOOD ALTERED [None]
  - LIVER FUNCTION TEST ABNORMAL [None]
